FAERS Safety Report 6511086-2 (Version None)
Quarter: 2009Q4

REPORT INFORMATION
  Report Type: 
  Country: None (occurrence: None)
  Receive Date: 20091222
  Receipt Date: 20090223
  Transmission Date: 20100525
  Serious: No
  Sender: FDA-Public Use
  Company Number: US-ASTRAZENECA-2009UW05054

PATIENT
  Age: 81 Year
  Sex: Female
  Weight: 78.5 kg

DRUGS (4)
  1. CRESTOR [Suspect]
     Route: 048
  2. BLOOD PRESSURE MEDICATION [Concomitant]
  3. THYROID MEDICATION [Concomitant]
  4. BABY ASPIRIN [Concomitant]

REACTIONS (1)
  - MUSCLE SPASMS [None]
